FAERS Safety Report 8943224 (Version 2)
Quarter: 2013Q2

REPORT INFORMATION
  Report Type: Spontaneous
  Country: US (occurrence: US)
  Receive Date: 20121204
  Receipt Date: 20130416
  Transmission Date: 20140414
  Serious: Yes (Hospitalization, Disabling, Other)
  Sender: FDA-Public Use
  Company Number: US-009507513-1211USA007637

PATIENT
  Age: 64 Year
  Sex: Male
  Weight: 72.11 kg

DRUGS (3)
  1. VICTRELIS [Suspect]
     Indication: HEPATITIS C
     Dosage: 800 MG, TID
     Route: 048
     Dates: start: 20120629, end: 20121011
  2. PEGASYS [Suspect]
  3. RIBAVIRIN [Suspect]
     Route: 048

REACTIONS (24)
  - Chronic hepatic failure [Unknown]
  - Hepatic cirrhosis [Unknown]
  - Ascites [Unknown]
  - Mental status changes [Recovered/Resolved]
  - Varices oesophageal [Recovered/Resolved]
  - Upper gastrointestinal haemorrhage [Unknown]
  - Encephalopathy [Unknown]
  - Packed red blood cell transfusion [Unknown]
  - Fatigue [Unknown]
  - Abdominal pain [Recovering/Resolving]
  - Dizziness [Unknown]
  - Gait disturbance [Unknown]
  - Pain in extremity [Unknown]
  - Pruritus [Unknown]
  - Erectile dysfunction [Unknown]
  - Drug abuse [Unknown]
  - Anxiety [Unknown]
  - Bronchitis [Unknown]
  - Chest pain [Unknown]
  - Gastrooesophageal reflux disease [Unknown]
  - Nephrolithiasis [Unknown]
  - Colitis [Unknown]
  - Bursitis [Unknown]
  - Polydipsia [Unknown]
